FAERS Safety Report 10427255 (Version 1)
Quarter: 2014Q3

REPORT INFORMATION
  Report Type: Spontaneous
  Country: US (occurrence: None)
  Receive Date: 20140725
  Receipt Date: 20140725
  Transmission Date: 20150326
  Serious: No
  Sender: FDA-Public Use
  Company Number: AP356-00856-SPO-US

PATIENT
  Age: 54 Year
  Sex: Female
  Weight: 100 kg

DRUGS (2)
  1. BELVIQ [Suspect]
     Active Substance: LORCASERIN HYDROCHLORIDE
     Indication: OVERWEIGHT
     Route: 048
     Dates: start: 20140605, end: 20140608
  2. FUROSEMIDE. [Concomitant]
     Active Substance: FUROSEMIDE

REACTIONS (4)
  - Abdominal pain [None]
  - Vaginal haemorrhage [None]
  - Abdominal pain lower [None]
  - Disorientation [None]

NARRATIVE: CASE EVENT DATE: 20140608
